FAERS Safety Report 5084113-X (Version None)
Quarter: 2006Q3

REPORT INFORMATION
  Report Type: 
  Country: None (occurrence: None)
  Receive Date: 20060821
  Receipt Date: 20060815
  Transmission Date: 20061208
  Serious: Yes (Other)
  Sender: FDA-Public Use
  Company Number: PHEH2006US10419

PATIENT
  Sex: Female

DRUGS (1)
  1. AREDIA [Suspect]
     Dates: start: 20020101, end: 20051007

REACTIONS (4)
  - BONE GRAFT [None]
  - OSTEONECROSIS [None]
  - TOOTH DISORDER [None]
  - TOOTH INFECTION [None]
